FAERS Safety Report 23821507 (Version 1)
Quarter: 2024Q2

REPORT INFORMATION
  Report Type: Spontaneous
  Country: US (occurrence: None)
  Receive Date: 20240504
  Receipt Date: 20240504
  Transmission Date: 20240716
  Serious: Yes (Life-Threatening, Hospitalization)
  Sender: FDA-Public Use
  Company Number: None

PATIENT
  Age: 56 Year
  Sex: Female
  Weight: 81 kg

DRUGS (1)
  1. OZEMPIC [Suspect]
     Active Substance: SEMAGLUTIDE
     Indication: Obesity
     Dosage: OTHER FREQUENCY : WEEKLY;?
     Route: 058
     Dates: start: 20230101

REACTIONS (5)
  - Presyncope [None]
  - Cardiac arrest [None]
  - Syncope [None]
  - Pulseless electrical activity [None]
  - Cardiac ventricular thrombosis [None]

NARRATIVE: CASE EVENT DATE: 20240504
